FAERS Safety Report 5871424-0 (Version None)
Quarter: 2008Q3

REPORT INFORMATION
  Report Type: 
  Country: None (occurrence: None)
  Receive Date: 20080905
  Receipt Date: 20080905
  Transmission Date: 20090109
  Serious: Yes (Hospitalization)
  Sender: FDA-Public Use
  Company Number: PHEH1997US05104

PATIENT
  Sex: Female

DRUGS (8)
  1. NEORAL [Suspect]
     Route: 048
     Dates: start: 19951002
  2. CLONIDINE [Concomitant]
  3. PROCARDIA XL [Concomitant]
  4. PEPCID [Concomitant]
  5. PREDNISONE [Concomitant]
  6. MYCELEX [Concomitant]
  7. LASIX [Concomitant]
  8. PHENOBARBITAL TAB [Concomitant]

REACTIONS (1)
  - BENIGN NEOPLASM [None]
